FAERS Safety Report 20137560 (Version 3)
Quarter: 2021Q4

REPORT INFORMATION
  Report Type: Report from Study
  Country: SE (occurrence: SE)
  Receive Date: 20211201
  Receipt Date: 20211222
  Transmission Date: 20220303
  Serious: Yes (Hospitalization)
  Sender: FDA-Public Use
  Company Number: SE-ABBVIE-21K-150-4180008-00

PATIENT
  Sex: Male

DRUGS (2)
  1. CARBIDOPA\LEVODOPA [Suspect]
     Active Substance: CARBIDOPA\LEVODOPA
     Indication: Parkinson^s disease
     Dosage: THERAPY DURATION: REMAINS AT 16H
     Route: 050
     Dates: start: 20171218
  2. CARBIDOPA\LEVODOPA [Suspect]
     Active Substance: CARBIDOPA\LEVODOPA
     Dosage: CURRENT DOSES: MORNING DOSE: 9 ML, CONTINUOUS DOSE: 3.7 ML/H AND EXTRA DOSE: 1.5 ML
     Route: 050
     Dates: start: 20211217

REACTIONS (2)
  - Device occlusion [Recovered/Resolved]
  - Device dislocation [Recovered/Resolved]
